FAERS Safety Report 9909492 (Version 1)
Quarter: 2014Q1

REPORT INFORMATION
  Report Type: Spontaneous
  Country: US (occurrence: None)
  Receive Date: 20140214
  Receipt Date: 20140214
  Transmission Date: 20141002
  Serious: No
  Sender: FDA-Public Use
  Company Number: None

PATIENT
  Age: 73 Year
  Sex: Female

DRUGS (5)
  1. RISPERIDONE [Suspect]
     Indication: PARANOIA
     Route: 048
  2. RISPERIDONE [Suspect]
     Indication: AGITATION
     Route: 048
  3. OLANZAPINE [Concomitant]
  4. DOCUSATE [Concomitant]
  5. MIRALAX [Concomitant]

REACTIONS (4)
  - Fatigue [None]
  - Dizziness [None]
  - Gait disturbance [None]
  - Anaemia [None]
